FAERS Safety Report 26113440 (Version 1)
Quarter: 2025Q4

REPORT INFORMATION
  Report Type: Spontaneous
  Country: EU (occurrence: EU)
  Receive Date: 20251202
  Receipt Date: 20251202
  Transmission Date: 20260117
  Serious: Yes (Life-Threatening, Hospitalization, Congenital Anomaly, Other)
  Sender: ALEXION PHARMACEUTICALS
  Company Number: EU-ASTRAZENECA-202511GLO028450FR

PATIENT
  Sex: Female

DRUGS (3)
  1. OMEPRAZOLE [Suspect]
     Active Substance: OMEPRAZOLE
     Dosage: 40 MILLIGRAM
  2. KETAMINE [Suspect]
     Active Substance: KETAMINE
     Dosage: 3 GRAM
     Dates: start: 20240915, end: 20250512
  3. INSULIN NOS [Concomitant]
     Active Substance: INSULIN NOS
     Route: 065

REACTIONS (17)
  - Neonatal respiratory distress [Unknown]
  - Hydrops foetalis [Recovered/Resolved]
  - Otospondylomegaepiphyseal dysplasia [Recovering/Resolving]
  - Premature baby [Recovering/Resolving]
  - Oesophagitis haemorrhagic [Recovering/Resolving]
  - Infantile apnoea [Unknown]
  - Polyhydramnios [Unknown]
  - Foetal anaemia [Unknown]
  - Acute pulmonary oedema [Unknown]
  - Hypotonia [Recovering/Resolving]
  - Poor sucking reflex [Recovering/Resolving]
  - Drug withdrawal syndrome neonatal [Unknown]
  - Jaundice neonatal [Unknown]
  - Hiatus hernia [Unknown]
  - Generalised oedema [Unknown]
  - Malaise [Unknown]
  - Foetal exposure during pregnancy [Recovered/Resolved]

NARRATIVE: CASE EVENT DATE: 20250101
